FAERS Safety Report 7022149-X (Version None)
Quarter: 2010Q3

REPORT INFORMATION
  Report Type: 
  Country: None (occurrence: None)
  Receive Date: 20100930
  Receipt Date: 20100920
  Transmission Date: 20110219
  Serious: Yes (Other)
  Sender: FDA-Public Use
  Company Number: PHHY2010CA48635

PATIENT
  Sex: Male

DRUGS (1)
  1. ACLASTA [Suspect]
     Indication: OSTEOPOROSIS
     Dosage: 5 MG
     Dates: start: 20090802

REACTIONS (7)
  - ATROPHY [None]
  - BLOOD CREATININE INCREASED [None]
  - MUSCLE ATROPHY [None]
  - NASOPHARYNGITIS [None]
  - PARALYSIS [None]
  - SPINAL CORD INJURY [None]
  - VIRAL INFECTION [None]
